FAERS Safety Report 4517576-6 (Version None)
Quarter: 2004Q4

REPORT INFORMATION
  Report Type: 
  Country: None (occurrence: None)
  Receive Date: 20041203
  Receipt Date: 20041119
  Transmission Date: 20050328
  Serious: Yes (Death)
  Sender: FDA-Public Use
  Company Number: US-NOVOPROD-240644

PATIENT
  Sex: Female

DRUGS (5)
  1. VAGIFEM [Suspect]
     Indication: HORMONE REPLACEMENT THERAPY
  2. FEMHRT [Concomitant]
     Indication: HORMONE REPLACEMENT THERAPY
  3. PREMPRO [Concomitant]
     Indication: HORMONE REPLACEMENT THERAPY
  4. CLIMARA ^BERLEX^ [Concomitant]
     Indication: HORMONE REPLACEMENT THERAPY
  5. MEDROXYPROGESTERONE ACETATE [Concomitant]
     Indication: HORMONE REPLACEMENT THERAPY

REACTIONS (1)
  - OVARIAN CANCER [None]
